FAERS Safety Report 21356927 (Version 1)
Quarter: 2022Q3

REPORT INFORMATION
  Report Type: Spontaneous
  Country: JP (occurrence: JP)
  Receive Date: 20220921
  Receipt Date: 20220921
  Transmission Date: 20221027
  Serious: Yes (Death)
  Sender: FDA-Public Use
  Company Number: JP-MALLINCKRODT-T202204844

PATIENT
  Age: 74 Year

DRUGS (1)
  1. NITRIC OXIDE [Suspect]
     Active Substance: NITRIC OXIDE
     Indication: Pulmonary hypertension
     Dosage: UNK, INHALATIONAL
     Route: 055
     Dates: start: 20220905, end: 20220906

REACTIONS (2)
  - Pulmonary hypertension [Fatal]
  - Product use issue [Unknown]

NARRATIVE: CASE EVENT DATE: 20220905
